FAERS Safety Report 17865473 (Version 1)
Quarter: 2020Q2

REPORT INFORMATION
  Report Type: Spontaneous
  Country: US (occurrence: US)
  Receive Date: 20200605
  Receipt Date: 20200605
  Transmission Date: 20200714
  Serious: Yes (Other)
  Sender: FDA-Public Use
  Company Number: None

PATIENT
  Age: 4 Week
  Sex: Male
  Weight: 78.3 kg

DRUGS (20)
  1. FAMOTIDINE 20 MG [Concomitant]
     Active Substance: FAMOTIDINE
     Dates: start: 20200525, end: 20200603
  2. FENTANYL DRIP [Concomitant]
     Dates: start: 20200525, end: 20200604
  3. VANCOMYCIN 1.5 GRAM [Concomitant]
     Dates: start: 20200602, end: 20200603
  4. CISATRACURIUM DRIP [Concomitant]
     Dates: start: 20200528, end: 20200604
  5. METHYLPREDNISONE 60 MG [Concomitant]
     Dates: start: 20200525, end: 20200601
  6. SENNOSIDES 5 ML [Concomitant]
     Dates: start: 20200525, end: 20200604
  7. ENOXAPARIN 40 MG [Concomitant]
     Active Substance: ENOXAPARIN
     Dates: start: 20200525, end: 20200602
  8. EPOPROSTENOL INHALED [Concomitant]
     Dates: start: 20200526, end: 20200604
  9. INSULIN LISPRO [Concomitant]
     Active Substance: INSULIN LISPRO
     Dates: start: 20200525, end: 20200603
  10. REMDESIVIR. [Suspect]
     Active Substance: REMDESIVIR
     Indication: COVID-19
     Route: 041
     Dates: start: 20200526, end: 20200530
  11. KETAMINE DRIP [Concomitant]
     Dates: start: 20200601, end: 20200604
  12. NOREPINEPHRINE DRIP [Concomitant]
     Dates: start: 20200526, end: 20200604
  13. ASPIRIN 81 MG [Concomitant]
     Active Substance: ASPIRIN
     Dates: start: 20200525, end: 20200604
  14. ATORVASTATIN 40 MG [Concomitant]
     Active Substance: ATORVASTATIN
     Dates: start: 20200525, end: 20200602
  15. TIMOLOL EYE DROP [Concomitant]
     Dates: start: 20200525, end: 20200604
  16. FUROSEMIDE 40 MG [Concomitant]
     Active Substance: FUROSEMIDE
     Dates: start: 20200601, end: 20200601
  17. NPH INSULIN [Concomitant]
     Active Substance: INSULIN BEEF
     Dates: start: 20200528, end: 20200602
  18. DOCUSATE 50 MG [Concomitant]
     Dates: start: 20200525, end: 20200604
  19. ZOSYN 4.5 GRAMS [Concomitant]
     Dates: start: 20200601, end: 20200603
  20. PROPOFOL DRIP [Concomitant]
     Active Substance: PROPOFOL
     Dates: start: 20200525, end: 20200602

REACTIONS (2)
  - Aspartate aminotransferase increased [None]
  - Bilirubin conjugated abnormal [None]

NARRATIVE: CASE EVENT DATE: 20200601
